FAERS Safety Report 14579975 (Version 1)
Quarter: 2018Q1

REPORT INFORMATION
  Report Type: Spontaneous
  Country: FR (occurrence: FR)
  Receive Date: 20180228
  Receipt Date: 20180228
  Transmission Date: 20180509
  Serious: Yes (Hospitalization, Other)
  Sender: FDA-Public Use
  Company Number: FR-CIPLA LTD.-2018FR06771

PATIENT

DRUGS (4)
  1. ZIDOVUDINE. [Suspect]
     Active Substance: ZIDOVUDINE
     Indication: HIV INFECTION
     Dosage: UNK
     Route: 048
  2. ABACAVIR SULFATE W/DOLUTEGRAVIR SODIUM/LAMIVU [Suspect]
     Active Substance: ABACAVIR SULFATE\DOLUTEGRAVIR SODIUM\LAMIVUDINE
     Indication: HIV INFECTION
     Dosage: 1 TAB/CAP
     Route: 048
     Dates: start: 20170401, end: 20170517
  3. ABACAVIR/LAMIVUDINE [Suspect]
     Active Substance: ABACAVIR\LAMIVUDINE
     Indication: HIV INFECTION
     Dosage: 1 TAB/CAP
     Route: 048
     Dates: start: 20170517
  4. RALTEGRAVIR. [Suspect]
     Active Substance: RALTEGRAVIR
     Indication: HIV INFECTION
     Dosage: 400 MG, PER DAY
     Route: 048
     Dates: start: 20170517

REACTIONS (4)
  - Gestational diabetes [Unknown]
  - Premature delivery [Unknown]
  - Pre-eclampsia [Unknown]
  - Exposure during pregnancy [Unknown]
